FAERS Safety Report 4280466-0 (Version None)
Quarter: 2004Q1

REPORT INFORMATION
  Report Type: 
  Country: None (occurrence: None)
  Receive Date: 20040127
  Receipt Date: 20040122
  Transmission Date: 20041129
  Serious: Yes (Death)
  Sender: FDA-Public Use
  Company Number: CA-JNJFOC-20040101791

PATIENT
  Age: 85 Year
  Sex: Female

DRUGS (1)
  1. REMINYL [Suspect]
     Dosage: 8 MG, 3 IN 1 DAY, ORAL
     Route: 048

REACTIONS (2)
  - ATHEROSCLEROSIS [None]
  - SUDDEN DEATH [None]
